FAERS Safety Report 7291612-9 (Version None)
Quarter: 2011Q1

REPORT INFORMATION
  Report Type: 
  Country: None (occurrence: None)
  Receive Date: 20110214
  Receipt Date: 20110210
  Transmission Date: 20110831
  Serious: Yes (Death, Hospitalization, Other)
  Sender: FDA-Public Use
  Company Number: PHHY2011BR11158

PATIENT
  Sex: Male
  Weight: 70 kg

DRUGS (1)
  1. DIOVAN [Suspect]
     Indication: HYPERTENSION
     Dosage: 40 MG (1 TABLET A DAY)
     Route: 048

REACTIONS (5)
  - FALL [None]
  - NASOPHARYNGITIS [None]
  - MULTI-ORGAN FAILURE [None]
  - SPINAL FRACTURE [None]
  - PNEUMONIA [None]
